FAERS Safety Report 8914429 (Version 1)
Quarter: 2012Q4

REPORT INFORMATION
  Report Type: 
  Country: US (occurrence: US)
  Receive Date: 20121118
  Receipt Date: 20121118
  Transmission Date: 20130627
  Serious: No
  Sender: FDA-Public Use
  Company Number: US-009507513-1211USA005647

PATIENT
  Age: 73 Year
  Sex: Male

DRUGS (1)
  1. LOSARTAN POTASSIUM [Suspect]
     Indication: HYPERTENSION
     Dosage: splitting the 100 mg dose and took half in the morning and half in the evening
     Route: 048

REACTIONS (4)
  - Hypertension [Unknown]
  - Syncope [Unknown]
  - Dizziness [Unknown]
  - Wrong technique in drug usage process [Unknown]
